FAERS Safety Report 18430148 (Version 3)
Quarter: 2020Q4

REPORT INFORMATION
  Report Type: Other
  Country: BG (occurrence: BG)
  Receive Date: 20201026
  Receipt Date: 20201214
  Transmission Date: 20210114
  Serious: No
  Sender: FDA-Public Use
  Company Number: BG-ROCHE-2698846

PATIENT
  Age: 39 Year
  Sex: Male
  Weight: 88.4 kg

DRUGS (7)
  1. PARACETAMOL [Concomitant]
     Active Substance: ACETAMINOPHEN
     Indication: PREMEDICATION
     Dosage: SUBSEQUENT DOSE: 01/JUN/2020
     Route: 048
     Dates: start: 20200518, end: 20200518
  2. OCRELIZUMAB. [Suspect]
     Active Substance: OCRELIZUMAB
     Indication: PROGRESSIVE RELAPSING MULTIPLE SCLEROSIS
     Dosage: 300 MG/250 ML
     Route: 042
     Dates: start: 20200518, end: 20200518
  3. DIPIRIDAMOL [Concomitant]
     Active Substance: DIPYRIDAMOLE
     Dosage: 6 TABLET?DOSE: 2
     Route: 048
     Dates: start: 20201023, end: 20201106
  4. METHYLPREDNISOLONE. [Concomitant]
     Active Substance: METHYLPREDNISOLONE
     Indication: PREMEDICATION
     Dosage: SUBSEQUENT DOSE: 01/JUN/2020
     Route: 042
     Dates: start: 20200518, end: 20200518
  5. OCRELIZUMAB. [Suspect]
     Active Substance: OCRELIZUMAB
     Indication: PRIMARY PROGRESSIVE MULTIPLE SCLEROSIS
     Dosage: 300 MG/250 ML
     Route: 042
     Dates: start: 20200601, end: 20200601
  6. ALLERGOSAN [Concomitant]
     Indication: PREMEDICATION
     Dosage: SUBSEQUENT DOSE: 01/JUN/2020
     Route: 048
     Dates: start: 20200518, end: 20200518
  7. AZITHROMYCIN ANHYDROUS. [Concomitant]
     Active Substance: AZITHROMYCIN ANHYDROUS
     Route: 048
     Dates: start: 20201023, end: 20201101

REACTIONS (1)
  - Lymphopenia [Recovering/Resolving]

NARRATIVE: CASE EVENT DATE: 20201013
